FAERS Safety Report 13948871 (Version 1)
Quarter: 2017Q3

REPORT INFORMATION
  Report Type: Report from Study
  Country: SE (occurrence: SE)
  Receive Date: 20170908
  Receipt Date: 20170908
  Transmission Date: 20171128
  Serious: Yes (Death)
  Sender: FDA-Public Use
  Company Number: SE-TEVA-803090ROM

PATIENT
  Age: 46 Year
  Sex: Female

DRUGS (2)
  1. PERPHENAZINE. [Concomitant]
     Active Substance: PERPHENAZINE
     Route: 065
  2. LITHIUM. [Suspect]
     Active Substance: LITHIUM
     Route: 065

REACTIONS (2)
  - Hypervolaemia [Fatal]
  - Toxicity to various agents [Fatal]
